FAERS Safety Report 24684361 (Version 1)
Quarter: 2024Q4

REPORT INFORMATION
  Report Type: Spontaneous
  Country: ES (occurrence: ES)
  Receive Date: 20241202
  Receipt Date: 20241202
  Transmission Date: 20250115
  Serious: Yes (Other)
  Sender: Teyro Labs
  Company Number: ES-TEYRO-2024-TY-000894

PATIENT
  Age: 48 Year
  Sex: Male

DRUGS (1)
  1. CARBOPLATIN [Suspect]
     Active Substance: CARBOPLATIN
     Indication: Seminoma
     Dosage: 7 AUC
     Route: 065

REACTIONS (2)
  - Acute kidney injury [Recovered/Resolved]
  - Off label use [Unknown]
